FAERS Safety Report 5167939-3 (Version None)
Quarter: 2006Q4

REPORT INFORMATION
  Report Type: 
  Country: None (occurrence: None)
  Receive Date: 20061208
  Receipt Date: 20051028
  Transmission Date: 20070319
  Serious: No
  Sender: FDA-Public Use
  Company Number: US-GLAXOSMITHKLINE-A0580104A

PATIENT
  Age: 70 Year
  Sex: Male

DRUGS (5)
  1. AVANDAMET [Suspect]
     Dosage: 4MG TWICE PER DAY
     Route: 048
  2. DILTIAZEM HCL [Concomitant]
  3. LEVOTHYROXINE SODIUM [Concomitant]
  4. CHOLESTEROL [Concomitant]
  5. GLUCOSAMINE [Concomitant]

REACTIONS (2)
  - DIZZINESS [None]
  - HYPERGLYCAEMIA [None]
